FAERS Safety Report 7740013-5 (Version None)
Quarter: 2011Q3

REPORT INFORMATION
  Report Type: 
  Country: None (occurrence: None)
  Receive Date: 20110906
  Receipt Date: 20110819
  Transmission Date: 20111222
  Serious: Yes (Disabling)
  Sender: FDA-Public Use
  Company Number: AUR-APL-2011-04718

PATIENT
  Age: 85 Year
  Sex: Female

DRUGS (3)
  1. ASPIRIN [Concomitant]
  2. SIMVASTATIN [Suspect]
     Indication: PRODUCT USED FOR UNKNOWN INDICATION
     Dosage: 40 MG (40 MG, 1 IN 1 D), ORAL
     Route: 048
     Dates: start: 20070101
  3. PERINDOPRIL ERBUMINE [Concomitant]

REACTIONS (1)
  - HYPOKALAEMIA [None]
